FAERS Safety Report 4822578-6 (Version None)
Quarter: 2005Q4

REPORT INFORMATION
  Report Type: 
  Country: None (occurrence: None)
  Receive Date: 20051108
  Receipt Date: 20051101
  Transmission Date: 20060501
  Serious: Yes (Other)
  Sender: FDA-Public Use
  Company Number: US-BRISTOL-MYERS SQUIBB COMPANY-13163613

PATIENT
  Age: 76 Year
  Sex: Male

DRUGS (8)
  1. TEQUIN [Suspect]
     Route: 031
     Dates: start: 20051024
  2. ETODOLAC [Concomitant]
  3. ZOCOR [Concomitant]
  4. ASPIRIN [Concomitant]
  5. MULTI-VITAMIN [Concomitant]
  6. GLUCOSAMINE [Concomitant]
  7. DOCUSATE [Concomitant]
  8. OMEPRAZOLE [Concomitant]

REACTIONS (1)
  - EYE INFECTION [None]
